FAERS Safety Report 13387937 (Version 8)
Quarter: 2018Q1

REPORT INFORMATION
  Report Type: Spontaneous
  Country: US (occurrence: US)
  Receive Date: 20170330
  Receipt Date: 20180201
  Transmission Date: 20180508
  Serious: Yes (Hospitalization, Other)
  Sender: FDA-Public Use
  Company Number: US-JAZZ-JPI-P-007300

PATIENT
  Age: 57 Year
  Sex: Female
  Weight: 102.4 kg

DRUGS (20)
  1. XYREM [Suspect]
     Active Substance: SODIUM OXYBATE
     Indication: CATAPLEXY
     Dosage: 2.25 G, BID
     Route: 048
     Dates: start: 20040907
  2. FLAGYL [Suspect]
     Active Substance: METRONIDAZOLE\METRONIDAZOLE HYDROCHLORIDE
     Indication: INFECTION
  3. TOPIRAMATE. [Concomitant]
     Active Substance: TOPIRAMATE
     Indication: MIGRAINE
  4. GABAPENTIN. [Concomitant]
     Active Substance: GABAPENTIN
     Indication: PAIN
  5. DOXYCYCLINE. [Concomitant]
     Active Substance: DOXYCYCLINE
     Indication: DERMATITIS
  6. BENEFIBER [Concomitant]
     Active Substance: STARCH, WHEAT
     Indication: GASTROOESOPHAGEAL REFLUX DISEASE
  7. AMPICILLIN [Suspect]
     Active Substance: AMPICILLIN
     Indication: INFECTION
  8. FLUTICASONE PROPIONATE. [Concomitant]
     Active Substance: FLUTICASONE PROPIONATE
     Indication: ASTHMA
  9. ALBUTEROL SULFATE. [Concomitant]
     Active Substance: ALBUTEROL SULFATE
     Indication: ASTHMA
  10. POLYETHYLENE GLYCOL [Concomitant]
     Active Substance: POLYETHYLENE GLYCOLS
     Indication: GASTROOESOPHAGEAL REFLUX DISEASE
  11. LORATADINE. [Concomitant]
     Active Substance: LORATADINE
     Indication: HYPERSENSITIVITY
  12. XYREM [Suspect]
     Active Substance: SODIUM OXYBATE
     Indication: SLEEP APNOEA SYNDROME
     Dosage: 4.5 G, BID
     Route: 048
     Dates: start: 20090423, end: 20120925
  13. LANSOPRAZOLE. [Concomitant]
     Active Substance: LANSOPRAZOLE
     Indication: GASTROOESOPHAGEAL REFLUX DISEASE
  14. AZELASTINE HYDROCHLORIDE. [Concomitant]
     Active Substance: AZELASTINE HYDROCHLORIDE
     Indication: HYPERSENSITIVITY
  15. XYREM [Suspect]
     Active Substance: SODIUM OXYBATE
     Indication: SLEEP DISORDER
     Dosage: 4.5 G, BID
     Route: 048
  16. XYREM [Suspect]
     Active Substance: SODIUM OXYBATE
     Indication: NARCOLEPSY
  17. MONTELUKAST SODIUM. [Concomitant]
     Active Substance: MONTELUKAST SODIUM
     Indication: ASTHMA
  18. CELECOXIB. [Concomitant]
     Active Substance: CELECOXIB
     Indication: ARTHRITIS
  19. ARMODAFINIL. [Suspect]
     Active Substance: ARMODAFINIL
     Indication: SLEEP DISORDER
     Dates: start: 2012, end: 2012
  20. OXYCODONE AND ACETAMINOPHEN [Concomitant]
     Active Substance: ACETAMINOPHEN\OXYCODONE HYDROCHLORIDE
     Indication: PAIN

REACTIONS (23)
  - Knee operation [Not Recovered/Not Resolved]
  - Insomnia [Not Recovered/Not Resolved]
  - Synovial cyst [Unknown]
  - Wound [Recovering/Resolving]
  - Wound complication [Recovering/Resolving]
  - Drug hypersensitivity [Not Recovered/Not Resolved]
  - Hypoaesthesia [Recovering/Resolving]
  - Tendon rupture [Unknown]
  - Fatigue [Not Recovered/Not Resolved]
  - Pulmonary thrombosis [Unknown]
  - Memory impairment [Unknown]
  - Infective tenosynovitis [Unknown]
  - Osteomyelitis [Unknown]
  - Psychomotor hyperactivity [Recovered/Resolved]
  - Pain in extremity [Recovering/Resolving]
  - Tendon injury [Unknown]
  - Back disorder [Unknown]
  - Dizziness [Unknown]
  - Depression [Unknown]
  - Thrombosis [Unknown]
  - Scar excision [Unknown]
  - Burning sensation [Unknown]
  - Arthritis [Not Recovered/Not Resolved]

NARRATIVE: CASE EVENT DATE: 2008
